FAERS Safety Report 13066781 (Version 1)
Quarter: 2016Q4

REPORT INFORMATION
  Report Type: Report from Study
  Country: JP (occurrence: JP)
  Receive Date: 20161227
  Receipt Date: 20161227
  Transmission Date: 20170207
  Serious: Yes (Other)
  Sender: FDA-Public Use
  Company Number: JP-CELGENEUS-JPN-2016124670

PATIENT
  Age: 75 Year
  Sex: Male

DRUGS (12)
  1. VIDAZA [Suspect]
     Active Substance: AZACITIDINE
     Dosage: 37.5 MG/M2
     Route: 041
     Dates: start: 20120705, end: 20120711
  2. VIDAZA [Suspect]
     Active Substance: AZACITIDINE
     Dosage: 37.5 MG/M2
     Route: 041
     Dates: start: 20121010, end: 20121016
  3. VIDAZA [Suspect]
     Active Substance: AZACITIDINE
     Dosage: 50 MG
     Route: 041
     Dates: start: 20130410, end: 20130416
  4. VIDAZA [Suspect]
     Active Substance: AZACITIDINE
     Dosage: 37.5 MG/M2
     Route: 041
     Dates: start: 20120905, end: 20120911
  5. VIDAZA [Suspect]
     Active Substance: AZACITIDINE
     Dosage: 37.5 MG/M2
     Route: 041
     Dates: start: 20120802, end: 20120808
  6. VIDAZA [Suspect]
     Active Substance: AZACITIDINE
     Dosage: 50 MG
     Route: 041
     Dates: start: 20121219, end: 20121225
  7. VIDAZA [Suspect]
     Active Substance: AZACITIDINE
     Dosage: 50 MG
     Route: 041
     Dates: start: 20130116, end: 20130122
  8. VIDAZA [Suspect]
     Active Substance: AZACITIDINE
     Dosage: 50 MG
     Route: 041
     Dates: start: 20130213, end: 20130219
  9. VIDAZA [Suspect]
     Active Substance: AZACITIDINE
     Indication: PRODUCT USED FOR UNKNOWN INDICATION
     Dosage: 75 MG/M2
     Route: 041
     Dates: start: 20120509, end: 20120515
  10. VIDAZA [Suspect]
     Active Substance: AZACITIDINE
     Dosage: 50 MG
     Route: 041
     Dates: start: 20121114, end: 20121120
  11. VIDAZA [Suspect]
     Active Substance: AZACITIDINE
     Dosage: 50 MG
     Route: 041
     Dates: start: 20130313, end: 20130319
  12. VIDAZA [Suspect]
     Active Substance: AZACITIDINE
     Dosage: 37.5 MG/M2
     Route: 041
     Dates: start: 20120607, end: 20120613

REACTIONS (4)
  - Febrile neutropenia [Recovered/Resolved]
  - Haemochromatosis [Not Recovered/Not Resolved]
  - Bronchitis chronic [Not Recovered/Not Resolved]
  - Febrile neutropenia [Recovered/Resolved]

NARRATIVE: CASE EVENT DATE: 20120513
